FAERS Safety Report 10106903 (Version 2)
Quarter: 2014Q2

REPORT INFORMATION
  Report Type: Other
  Country: US (occurrence: US)
  Receive Date: 20140424
  Receipt Date: 20140613
  Transmission Date: 20141212
  Serious: Yes (Hospitalization, Other)
  Sender: FDA-Public Use
  Company Number: US-GSKPPD-2014GSK001629

PATIENT
  Age: 63 Year
  Sex: Female
  Weight: 99.1 kg

DRUGS (6)
  1. AVANDIA [Suspect]
     Indication: DIABETES MELLITUS
     Route: 048
     Dates: start: 2005, end: 2008
  2. AVANDAMET [Suspect]
     Indication: DIABETES MELLITUS
     Dosage: 2/500 MG
     Route: 048
     Dates: start: 2003, end: 2006
  3. ATENOLOL [Concomitant]
     Route: 048
  4. FUROSEMIDE [Concomitant]
     Route: 048
  5. LISINOPRIL-HYDROCHLOROTHIAZIDE [Concomitant]
     Dosage: 40-25 MG
     Route: 048
  6. K-DUR [Concomitant]
     Route: 048

REACTIONS (2)
  - Myocardial infarction [None]
  - Cardiac failure congestive [None]
